FAERS Safety Report 20799749 (Version 2)
Quarter: 2024Q2

REPORT INFORMATION
  Report Type: Report from Study
  Country: US (occurrence: US)
  Receive Date: 20220509
  Receipt Date: 20240612
  Transmission Date: 20240716
  Serious: Yes (Other)
  Sender: FDA-Public Use
  Company Number: US-ABBVIE-22K-163-4382461-00

PATIENT
  Age: 61 Year
  Sex: Female

DRUGS (5)
  1. SKYRIZI [Suspect]
     Active Substance: RISANKIZUMAB-RZAA
     Indication: Psoriasis
     Route: 058
  2. SKYRIZI [Suspect]
     Active Substance: RISANKIZUMAB-RZAA
     Route: 058
     Dates: start: 20211014
  3. JANSSEN COVID-19 VACCINE [Concomitant]
     Active Substance: AD26.COV2.S
     Indication: COVID-19 immunisation
     Dosage: 1 IN ONCE
     Route: 030
     Dates: start: 20210407, end: 20210407
  4. JANSSEN COVID-19 VACCINE [Concomitant]
     Active Substance: AD26.COV2.S
     Indication: COVID-19 immunisation
     Dosage: 1 IN ONCE
     Route: 030
     Dates: start: 2021, end: 2021
  5. MODERNA COVID-19 VACCINE [Concomitant]
     Active Substance: ELASOMERAN
     Indication: COVID-19 immunisation
     Dosage: BOOSTER?1 IN ONCE
     Route: 030
     Dates: start: 202110, end: 202110

REACTIONS (11)
  - Breast cancer female [Recovered/Resolved]
  - Skin cancer [Recovered/Resolved]
  - Skin exfoliation [Unknown]
  - Diabetes mellitus [Unknown]
  - Skin disorder [Recovered/Resolved]
  - Vitiligo [Unknown]
  - Peripheral swelling [Unknown]
  - Skin disorder [Not Recovered/Not Resolved]
  - Arthralgia [Unknown]
  - Ophthalmic migraine [Unknown]
  - Pruritus [Unknown]

NARRATIVE: CASE EVENT DATE: 20230606
